FAERS Safety Report 6270579-6 (Version None)
Quarter: 2009Q3

REPORT INFORMATION
  Report Type: 
  Country: None (occurrence: None)
  Receive Date: 20090716
  Receipt Date: 20090707
  Transmission Date: 20100115
  Serious: Yes (Other)
  Sender: FDA-Public Use
  Company Number: FR-ASTRAZENECA-2009SE04375

PATIENT
  Age: 824 Month
  Sex: Male

DRUGS (2)
  1. SYMBICORT [Suspect]
     Indication: COUGH
     Dosage: 400/12 UG ONE INHALATION TWICE  DAILY
     Route: 055
     Dates: start: 20090602
  2. MUCOMYST [Concomitant]

REACTIONS (2)
  - MUSCLE SPASMS [None]
  - NARROW ANTERIOR CHAMBER ANGLE [None]
